FAERS Safety Report 11936931 (Version 1)
Quarter: 2016Q1

REPORT INFORMATION
  Report Type: Spontaneous
  Country: FR (occurrence: FR)
  Receive Date: 20160121
  Receipt Date: 20160121
  Transmission Date: 20160526
  Serious: Yes (Life-Threatening, Hospitalization)
  Sender: FDA-Public Use
  Company Number: FR-ASTRAZENECA-2016SE05477

PATIENT
  Age: 842 Month
  Sex: Male

DRUGS (3)
  1. LASILIX RETARD [Interacting]
     Active Substance: FUROSEMIDE
     Route: 048
     Dates: start: 201508, end: 20150901
  2. RAMIPRIL. [Interacting]
     Active Substance: RAMIPRIL
     Route: 048
     Dates: start: 201508, end: 20150901
  3. ATACAND [Suspect]
     Active Substance: CANDESARTAN CILEXETIL
     Route: 048
     Dates: start: 201508, end: 20150901

REACTIONS (6)
  - Acute kidney injury [Recovered/Resolved]
  - Drug interaction [Unknown]
  - Anuria [Recovered/Resolved]
  - Consciousness fluctuating [Unknown]
  - Diarrhoea [Unknown]
  - Vomiting [Unknown]

NARRATIVE: CASE EVENT DATE: 201508
